FAERS Safety Report 9152607 (Version 3)
Quarter: 2013Q2

REPORT INFORMATION
  Report Type: Report from Study
  Country: DE (occurrence: DE)
  Receive Date: 20130308
  Receipt Date: 20130531
  Transmission Date: 20140414
  Serious: Yes (Hospitalization)
  Sender: FDA-Public Use
  Company Number: DE-PFIZER INC-2013074261

PATIENT
  Age: 59 Year
  Sex: Female
  Weight: 101.8 kg

DRUGS (2)
  1. TORISEL [Suspect]
     Indication: ENDOMETRIAL CANCER
     Dosage: 25 MG, UNK
     Route: 042
     Dates: start: 20130110
  2. TORISEL [Suspect]
     Dosage: 20 MG, UNK
     Route: 042
     Dates: end: 20130221

REACTIONS (1)
  - Angioedema [Recovered/Resolved]
